FAERS Safety Report 20318558 (Version 1)
Quarter: 2022Q1

REPORT INFORMATION
  Report Type: Spontaneous
  Country: US (occurrence: US)
  Receive Date: 20220110
  Receipt Date: 20220110
  Transmission Date: 20220423
  Serious: No
  Sender: FDA-Public Use
  Company Number: US-SANOFI-00917381

PATIENT
  Sex: Male

DRUGS (1)
  1. TOUJEO [Suspect]
     Active Substance: INSULIN GLARGINE
     Dosage: 20 IU, BID
     Route: 065

REACTIONS (5)
  - Hypoacusis [Recovering/Resolving]
  - Visual impairment [Recovering/Resolving]
  - Blood glucose increased [Recovering/Resolving]
  - Product dose omission issue [Unknown]
  - Product use issue [Unknown]
